FAERS Safety Report 19117382 (Version 1)
Quarter: 2021Q2

REPORT INFORMATION
  Report Type: Spontaneous
  Country: US (occurrence: US)
  Receive Date: 20210409
  Receipt Date: 20210409
  Transmission Date: 20210717
  Serious: No
  Sender: FDA-Public Use
  Company Number: US-ASTRAZENECA-2021A271025

PATIENT
  Age: 68 Year
  Sex: Female

DRUGS (2)
  1. OLAPARIB. [Suspect]
     Active Substance: OLAPARIB
     Indication: OVARIAN CANCER
     Dosage: 300 MILLIGRAM, BID
     Route: 048
     Dates: start: 201909
  2. OLAPARIB. [Suspect]
     Active Substance: OLAPARIB
     Indication: OVARIAN CANCER
     Route: 048

REACTIONS (5)
  - Myalgia [Unknown]
  - Hair texture abnormal [Unknown]
  - Alopecia [Unknown]
  - Nausea [Unknown]
  - Fatigue [Unknown]
